FAERS Safety Report 6586320-3 (Version None)
Quarter: 2010Q1

REPORT INFORMATION
  Report Type: 
  Country: None (occurrence: None)
  Receive Date: 20100217
  Receipt Date: 20100208
  Transmission Date: 20100710
  Serious: Yes (Hospitalization)
  Sender: FDA-Public Use
  Company Number: US-MERCK-1002USA01569

PATIENT
  Sex: Male

DRUGS (4)
  1. ISENTRESS [Suspect]
     Indication: HIV INFECTION
     Route: 048
  2. PREZISTA [Concomitant]
     Route: 065
  3. NORVIR [Concomitant]
     Route: 065
  4. INTELENCE [Concomitant]
     Route: 065

REACTIONS (3)
  - BLOOD POTASSIUM INCREASED [None]
  - RENAL DISORDER [None]
  - RHABDOMYOLYSIS [None]
